FAERS Safety Report 20887575 (Version 1)
Quarter: 2022Q2

REPORT INFORMATION
  Report Type: Spontaneous
  Country: GB (occurrence: GB)
  Receive Date: 20220528
  Receipt Date: 20220528
  Transmission Date: 20220721
  Serious: Yes (Death, Other)
  Sender: FDA-Public Use
  Company Number: GB-AMGEN-GBRSP2022091078

PATIENT

DRUGS (1)
  1. BLINATUMOMAB [Suspect]
     Active Substance: BLINATUMOMAB
     Indication: Acute lymphocytic leukaemia recurrent
     Dosage: UNK
     Route: 065

REACTIONS (6)
  - COVID-19 pneumonia [Fatal]
  - Acute lymphocytic leukaemia recurrent [Fatal]
  - Cytokine release syndrome [Unknown]
  - Infection [Unknown]
  - Generalised tonic-clonic seizure [Unknown]
  - Minimal residual disease [Unknown]
